FAERS Safety Report 20033523 (Version 1)
Quarter: 2021Q4

REPORT INFORMATION
  Report Type: Spontaneous
  Country: IL (occurrence: None)
  Receive Date: 20211104
  Receipt Date: 20211104
  Transmission Date: 20220304
  Serious: Yes (Other)
  Sender: FDA-Public Use
  Company Number: 2021A776224

PATIENT
  Age: 77 Year
  Sex: Male

DRUGS (5)
  1. OSIMERTINIB [Suspect]
     Active Substance: OSIMERTINIB
     Indication: Non-small cell lung cancer
     Route: 048
  2. IBRUTINIB [Concomitant]
     Active Substance: IBRUTINIB
     Indication: Chronic lymphocytic leukaemia
     Route: 065
  3. ERLOTINIB [Concomitant]
     Active Substance: ERLOTINIB
     Indication: Chronic lymphocytic leukaemia
     Route: 065
  4. ERLOTINIB [Concomitant]
     Active Substance: ERLOTINIB
     Indication: Chronic lymphocytic leukaemia
     Route: 065
  5. ERLOTINIB [Concomitant]
     Active Substance: ERLOTINIB
     Indication: Chronic lymphocytic leukaemia
     Route: 065

REACTIONS (2)
  - Lymphadenopathy [Unknown]
  - Chronic lymphocytic leukaemia transformation [Unknown]
